FAERS Safety Report 4407157-7 (Version None)
Quarter: 2004Q3

REPORT INFORMATION
  Report Type: 
  Country: None (occurrence: None)
  Receive Date: 20040721
  Receipt Date: 20040708
  Transmission Date: 20050211
  Serious: Yes (Other)
  Sender: FDA-Public Use
  Company Number: SUSI-2004-00408

PATIENT
  Sex: Male

DRUGS (1)
  1. CARBATROL [Suspect]
     Dosage: FOUR 100-MG CAPSULES,

REACTIONS (2)
  - CONVULSION [None]
  - MEDICATION ERROR [None]
